FAERS Safety Report 7737196-X (Version None)
Quarter: 2011Q3

REPORT INFORMATION
  Report Type: 
  Country: None (occurrence: None)
  Receive Date: 20110908
  Receipt Date: 20110830
  Transmission Date: 20111222
  Serious: Yes (Other)
  Sender: FDA-Public Use
  Company Number: JP-ASTRAZENECA-2011SE52702

PATIENT
  Age: 80 Year
  Sex: Male

DRUGS (6)
  1. ESOMEPRAZOLE MAGNESIUM [Suspect]
     Route: 048
     Dates: start: 20100806, end: 20110810
  2. DEPAKENE [Suspect]
     Dosage: DOSE UNKNOWN
     Route: 048
  3. ASPIRIN [Suspect]
     Dosage: DOSE UNKNOWN
     Route: 048
  4. LANSOPRAZOLE [Suspect]
     Route: 065
  5. GEFANIL [Suspect]
     Route: 048
     Dates: start: 20100806, end: 20110810
  6. LASIX [Suspect]
     Dosage: DOSE UNKNOWN
     Route: 065

REACTIONS (1)
  - LUNG NEOPLASM MALIGNANT [None]
